FAERS Safety Report 24242734 (Version 2)
Quarter: 2024Q3

REPORT INFORMATION
  Report Type: Report from Study
  Country: US (occurrence: US)
  Receive Date: 20240823
  Receipt Date: 20240918
  Transmission Date: 20241017
  Serious: Yes (Hospitalization)
  Sender: SAREPTA THERAPEUTICS
  Company Number: US-SAREPTA THERAPEUTICS INC.-SRP2024-004966

PATIENT
  Age: 2 Year
  Sex: Male
  Weight: 14.3 kg

DRUGS (1)
  1. CASIMERSEN [Suspect]
     Active Substance: CASIMERSEN
     Indication: Product used for unknown indication
     Dosage: UNK
     Dates: start: 202205

REACTIONS (5)
  - Haematemesis [Recovered/Resolved]
  - Viral sepsis [Recovered/Resolved]
  - Gastroenteritis [Recovered/Resolved]
  - Rhinorrhoea [Recovered/Resolved]
  - Pyrexia [Unknown]

NARRATIVE: CASE EVENT DATE: 20240801
